FAERS Safety Report 4900376-2 (Version None)
Quarter: 2006Q1

REPORT INFORMATION
  Report Type: 
  Country: None (occurrence: None)
  Receive Date: 20060201
  Receipt Date: 20060113
  Transmission Date: 20060701
  Serious: Yes (Hospitalization, Other)
  Sender: FDA-Public Use
  Company Number: US200601002293

PATIENT
  Age: 67 Year
  Sex: Female

DRUGS (4)
  1. GEMZAR [Suspect]
     Indication: OVARIAN CANCER
     Dosage: INTRAVENOUS; OTHER, INTRAVENOUS
     Route: 042
     Dates: start: 20050901, end: 20050901
  2. GEMZAR [Suspect]
     Indication: OVARIAN CANCER
     Dosage: INTRAVENOUS; OTHER, INTRAVENOUS
     Route: 042
     Dates: start: 20050901
  3. GEMZAR [Suspect]
     Indication: OVARIAN CANCER
     Dosage: INTRAVENOUS
     Route: 042
     Dates: start: 20050901
  4. CARBOPLATIN [Concomitant]

REACTIONS (9)
  - COUGH [None]
  - DEEP VEIN THROMBOSIS [None]
  - DRUG INEFFECTIVE [None]
  - DYSPNOEA [None]
  - ERYTHEMA [None]
  - FLUID RETENTION [None]
  - OEDEMA PERIPHERAL [None]
  - PNEUMONIA KLEBSIELLA [None]
  - PULMONARY EMBOLISM [None]
